FAERS Safety Report 13504372 (Version 1)
Quarter: 2017Q2

REPORT INFORMATION
  Report Type: Spontaneous
  Country: US (occurrence: US)
  Receive Date: 20170502
  Receipt Date: 20170502
  Transmission Date: 20170830
  Serious: Yes (Other)
  Sender: FDA-Public Use
  Company Number: US-BAYER-2017-081911

PATIENT
  Age: 23 Year
  Sex: Male

DRUGS (2)
  1. HELIXATE FS [Suspect]
     Active Substance: ANTIHEMOPHILIC FACTOR, HUMAN RECOMBINANT
     Indication: FACTOR VIII DEFICIENCY
     Dosage: TIW AND PRN. INFUSE 3620 UNITS FOR MAJOR BLEEDS
     Dates: start: 20170202
  2. HELIXATE FS [Suspect]
     Active Substance: ANTIHEMOPHILIC FACTOR, HUMAN RECOMBINANT
     Indication: FACTOR VIII DEFICIENCY
     Dosage: TIW AND PRN. INFUSE 3620 UNITS FOR MAJOR BLEEDS
     Route: 042
     Dates: start: 20170202

REACTIONS (1)
  - Haemarthrosis [None]
